FAERS Safety Report 8389669-7 (Version None)
Quarter: 2012Q2

REPORT INFORMATION
  Report Type: 
  Country: None (occurrence: None)
  Receive Date: 20120528
  Receipt Date: 20120517
  Transmission Date: 20120825
  Serious: Yes (Hospitalization)
  Sender: FDA-Public Use
  Company Number: US-BRISTOL-MYERS SQUIBB COMPANY-16562308

PATIENT
  Age: 55 Year
  Sex: Male
  Weight: 111 kg

DRUGS (10)
  1. LOMOTIL [Concomitant]
     Dosage: TAB
     Route: 048
  2. ASPIRIN [Concomitant]
  3. LIPITOR [Concomitant]
  4. HYDROCHLOROTHIAZIDE [Concomitant]
  5. PERCOCET [Concomitant]
     Dosage: TAB
     Route: 048
  6. PREDNISONE TAB [Concomitant]
     Dosage: 6TABS
     Dates: start: 20120210
  7. NEXIUM [Concomitant]
  8. IPILIMUMAB [Suspect]
     Indication: MALIGNANT MELANOMA
     Dosage: LAST DOSE:21DEC11, REMOVED FROM PROTOCOL ON 15FEB12
     Route: 042
     Dates: start: 20111130, end: 20111221
  9. LISINOPRIL [Concomitant]
  10. OMEPRAZOLE [Concomitant]
     Dosage: 1DF=1CAP
     Route: 048

REACTIONS (2)
  - HEADACHE [None]
  - OPHTHALMOPLEGIA [None]
